FAERS Safety Report 18592776 (Version 2)
Quarter: 2020Q4

REPORT INFORMATION
  Report Type: Report from Study
  Country: DE (occurrence: DE)
  Receive Date: 20201209
  Receipt Date: 20201209
  Transmission Date: 20210114
  Serious: Yes (Life-Threatening)
  Sender: FDA-Public Use
  Company Number: DE-MYLANLABS-2020M1099972

PATIENT
  Sex: Female
  Weight: 82.5 kg

DRUGS (4)
  1. ALLERGOSPASMIN [Concomitant]
     Indication: PRODUCT USED FOR UNKNOWN INDICATION
     Dosage: UNK
  2. HULIO [Suspect]
     Active Substance: ADALIMUMAB-FKJP
     Indication: PROSTATIC SPECIFIC ANTIGEN
     Dosage: 40 MILLIGRAM
     Route: 058
     Dates: start: 20200213, end: 20200215
  3. HULIO [Suspect]
     Active Substance: ADALIMUMAB-FKJP
     Dosage: 40 MILLIGRAM
     Route: 058
     Dates: start: 20200229
  4. METEX                              /00082702/ [Concomitant]
     Active Substance: METFORMIN HYDROCHLORIDE
     Indication: PROSTATIC SPECIFIC ANTIGEN
     Dosage: 10 MILLIGRAM
     Route: 058
     Dates: start: 20200815

REACTIONS (7)
  - Syncope [Recovered/Resolved]
  - Disturbance in attention [Recovered/Resolved]
  - Loss of consciousness [Recovered/Resolved]
  - Anaphylactic reaction [Recovered/Resolved]
  - Urticaria cholinergic [Recovered/Resolved]
  - Alcohol poisoning [Recovered/Resolved]
  - Dyspnoea [Recovered/Resolved]

NARRATIVE: CASE EVENT DATE: 20200215
